FAERS Safety Report 8345348-3 (Version None)
Quarter: 2012Q2

REPORT INFORMATION
  Report Type: 
  Country: None (occurrence: None)
  Receive Date: 20120402
  Receipt Date: 20110610
  Transmission Date: 20120825
  Serious: Yes (Death)
  Sender: FDA-Public Use
  Company Number: 285760USA

PATIENT
  Age: 34 Year
  Sex: Male

DRUGS (2)
  1. AMPHETAMINE AND DEXTROAMPHETAMINE SALTS [Suspect]
     Dosage: 30MG,ORAL
     Route: 048
  2. SILDENAFIL [Suspect]

REACTIONS (2)
  - DEATH [None]
  - DRUG INTERACTION [None]
